FAERS Safety Report 7634530-6 (Version None)
Quarter: 2011Q3

REPORT INFORMATION
  Report Type: 
  Country: None (occurrence: None)
  Receive Date: 20110725
  Receipt Date: 20110720
  Transmission Date: 20111222
  Serious: Yes (Hospitalization)
  Sender: FDA-Public Use
  Company Number: CH-PFIZER INC-HQWYE149510OCT03

PATIENT
  Sex: Female

DRUGS (7)
  1. SINEQUAN [Interacting]
     Dosage: 50.0 MG, 1X/DAY
     Route: 048
  2. DEXTROMETHORPHAN HYDROBROMIDE [Interacting]
     Dosage: UNK
     Route: 048
     Dates: start: 20030601, end: 20030101
  3. EFFEXOR [Interacting]
     Dosage: 150 MG, 1X/DAY
     Route: 048
  4. DEXTROMETHORPHAN HYDROBROMIDE [Interacting]
     Dosage: 25.0 MG, 1X/DAY
     Route: 048
     Dates: start: 20030822, end: 20030822
  5. NALTREXONE HYDROCHLORIDE [Interacting]
     Dosage: 100.0 MG, 1X/DAY
     Route: 048
  6. RITALIN [Suspect]
     Dosage: 60.0 MG, 1X/DAY
     Route: 048
  7. DEXTROMETHORPHAN HYDROBROMIDE [Interacting]
     Dosage: 25.0 MG, 1X/DAY
     Route: 048
     Dates: start: 20030822, end: 20030822

REACTIONS (5)
  - CONFUSIONAL STATE [None]
  - DRUG INTERACTION [None]
  - VERTIGO [None]
  - MEMORY IMPAIRMENT [None]
  - FEELING HOT [None]
